FAERS Safety Report 23901698 (Version 1)
Quarter: 2024Q2

REPORT INFORMATION
  Report Type: Spontaneous
  Country: US (occurrence: None)
  Receive Date: 20240526
  Receipt Date: 20240526
  Transmission Date: 20240716
  Serious: No
  Sender: FDA-Public Use
  Company Number: US-ROCHE-3328091

PATIENT
  Sex: Female
  Weight: 76.726 kg

DRUGS (3)
  1. OCREVUS [Suspect]
     Active Substance: OCRELIZUMAB
     Indication: Multiple sclerosis
     Route: 065
  2. NIFEDIPINE [Concomitant]
     Active Substance: NIFEDIPINE
     Indication: Hypertension
  3. MODAFINIL [Concomitant]
     Active Substance: MODAFINIL

REACTIONS (3)
  - Maternal exposure before pregnancy [Unknown]
  - Hypertension [Unknown]
  - Obesity [Unknown]
